FAERS Safety Report 5135309-X (Version None)
Quarter: 2006Q4

REPORT INFORMATION
  Report Type: 
  Country: None (occurrence: None)
  Receive Date: 20061026
  Receipt Date: 20060828
  Transmission Date: 20070319
  Serious: Yes (Other)
  Sender: FDA-Public Use
  Company Number: US-PURDUE-USA_2006_0025069

PATIENT
  Age: 71 Year
  Sex: Male

DRUGS (2)
  1. HYDROMORPHONE HCL (SIMILAR TO NDA 21-044) [Suspect]
     Indication: CANCER PAIN
  2. ANTINEOPLASTIC AGENTS [Concomitant]
     Indication: METASTATIC NEOPLASM

REACTIONS (2)
  - JAUNDICE [None]
  - RASH [None]
